FAERS Safety Report 5808074-8 (Version None)
Quarter: 2008Q3

REPORT INFORMATION
  Report Type: 
  Country: None (occurrence: None)
  Receive Date: 20080711
  Receipt Date: 20080630
  Transmission Date: 20090109
  Serious: Yes (Hospitalization, Other)
  Sender: FDA-Public Use
  Company Number: US-PFIZER INC-2008054634

PATIENT
  Age: 42 Year
  Sex: Female

DRUGS (1)
  1. LYRICA [Suspect]
     Dates: start: 20080101, end: 20080401

REACTIONS (13)
  - ANXIETY [None]
  - ARTHRALGIA [None]
  - BACK PAIN [None]
  - BURNING SENSATION [None]
  - CONVULSION [None]
  - DRUG DOSE OMISSION [None]
  - DYSKINESIA [None]
  - HEADACHE [None]
  - HYPOAESTHESIA [None]
  - LIMB INJURY [None]
  - MUSCLE TWITCHING [None]
  - NECK PAIN [None]
  - PAIN IN EXTREMITY [None]
